FAERS Safety Report 8290862-2 (Version None)
Quarter: 2012Q2

REPORT INFORMATION
  Report Type: 
  Country: None (occurrence: None)
  Receive Date: 20120417
  Receipt Date: 20111129
  Transmission Date: 20120825
  Serious: Yes (Other)
  Sender: FDA-Public Use
  Company Number: US-ASTRAZENECA-2011SE63726

PATIENT
  Age: 51 Year
  Sex: Female
  Weight: 132.9 kg

DRUGS (11)
  1. NEXIUM [Suspect]
     Indication: GASTROOESOPHAGEAL REFLUX DISEASE
     Route: 048
  2. TOPAMAX [Concomitant]
  3. SYMBICORT [Concomitant]
  4. CELEXA [Concomitant]
  5. LASIX [Concomitant]
  6. XANAX [Concomitant]
  7. VITAMIN E [Concomitant]
  8. SEROQUEL [Concomitant]
     Route: 048
  9. LISINOPRIL [Concomitant]
  10. VITAMIN D [Concomitant]
  11. VITAMIN B COMPLEX CAP [Concomitant]

REACTIONS (21)
  - ASTHMA [None]
  - DYSPEPSIA [None]
  - ABDOMINAL PAIN [None]
  - INTERVERTEBRAL DISC DEGENERATION [None]
  - DYSPNOEA [None]
  - ANXIETY DISORDER [None]
  - MALAISE [None]
  - EROSIVE OESOPHAGITIS [None]
  - OBESITY [None]
  - ARTHRALGIA [None]
  - INSOMNIA [None]
  - NEUROPATHY PERIPHERAL [None]
  - HIATUS HERNIA [None]
  - MIGRAINE [None]
  - LYMPHOEDEMA [None]
  - CHRONIC OBSTRUCTIVE PULMONARY DISEASE [None]
  - OSTEOARTHRITIS [None]
  - IRRITABLE BOWEL SYNDROME [None]
  - FATIGUE [None]
  - BACK PAIN [None]
  - MAJOR DEPRESSION [None]
